FAERS Safety Report 5376417-8 (Version None)
Quarter: 2007Q3

REPORT INFORMATION
  Report Type: 
  Country: None (occurrence: None)
  Receive Date: 20070702
  Receipt Date: 20070621
  Transmission Date: 20080115
  Serious: Yes (Death)
  Sender: FDA-Public Use
  Company Number: PFIZER INC-2007051609

PATIENT
  Age: 46 Year
  Sex: Female

DRUGS (1)
  1. VORICONAZOLE [Suspect]
     Indication: SCEDOSPORIUM INFECTION

REACTIONS (1)
  - SCEDOSPORIUM INFECTION [None]
